FAERS Safety Report 4725756-X (Version None)
Quarter: 2005Q3

REPORT INFORMATION
  Report Type: 
  Country: None (occurrence: None)
  Receive Date: 20050727
  Receipt Date: 20050725
  Transmission Date: 20060218
  Serious: Yes (Other)
  Sender: FDA-Public Use
  Company Number: PHNR2005AU01158

PATIENT

DRUGS (1)
  1. LIORESAL [Suspect]
     Dosage: 100-150 MG, DAILY
     Route: 048

REACTIONS (2)
  - DELUSION [None]
  - PSYCHOTIC DISORDER [None]
